FAERS Safety Report 16091829 (Version 1)
Quarter: 2019Q1

REPORT INFORMATION
  Report Type: Spontaneous
  Country: US (occurrence: US)
  Receive Date: 20190319
  Receipt Date: 20190319
  Transmission Date: 20190418
  Serious: No
  Sender: FDA-Public Use
  Company Number: US-ELI_LILLY_AND_COMPANY-US201902012956

PATIENT
  Sex: Female

DRUGS (1)
  1. EMGALITY [Suspect]
     Active Substance: GALCANEZUMAB-GNLM
     Indication: PRODUCT USED FOR UNKNOWN INDICATION
     Dosage: UNK, UNKNOWN
     Route: 065

REACTIONS (6)
  - Injection site erythema [Unknown]
  - Fatigue [Unknown]
  - Hyperhidrosis [Unknown]
  - Injection site pain [Unknown]
  - Injection site warmth [Unknown]
  - Injection site pallor [Unknown]

NARRATIVE: CASE EVENT DATE: 201902
